FAERS Safety Report 5482719-7 (Version None)
Quarter: 2007Q4

REPORT INFORMATION
  Report Type: 
  Country: None (occurrence: None)
  Receive Date: 20071011
  Receipt Date: 20071001
  Transmission Date: 20080405
  Serious: Yes (Death, Hospitalization, Other)
  Sender: FDA-Public Use
  Company Number: US-PFIZER INC-2007030483

PATIENT
  Sex: Female

DRUGS (8)
  1. BEXTRA [Suspect]
     Indication: ARTHRITIS
     Route: 048
  2. CELEBREX [Concomitant]
  3. DARVOCET [Concomitant]
  4. VIOXX [Concomitant]
  5. DEMEROL [Concomitant]
  6. PERCOCET [Concomitant]
  7. TYLENOL (CAPLET) [Concomitant]
  8. ULTRAM [Concomitant]

REACTIONS (7)
  - ARRHYTHMIA [None]
  - CEREBROVASCULAR ACCIDENT [None]
  - MYOCARDIAL INFARCTION [None]
  - ORGAN FAILURE [None]
  - PULMONARY EMBOLISM [None]
  - STEVENS-JOHNSON SYNDROME [None]
  - THROMBOSIS [None]
